FAERS Safety Report 4472126-8 (Version None)
Quarter: 2004Q3

REPORT INFORMATION
  Report Type: 
  Country: None (occurrence: None)
  Receive Date: 20040909
  Receipt Date: 20040621
  Transmission Date: 20050211
  Serious: No
  Sender: FDA-Public Use
  Company Number: A03200402050

PATIENT

DRUGS (1)
  1. ELOXATIN [Suspect]
     Indication: BRAIN NEOPLASM
     Dosage: INTRAVENOUS NOS

REACTIONS (1)
  - BALANCE DISORDER [None]
